FAERS Safety Report 25474093 (Version 1)
Quarter: 2025Q2

REPORT INFORMATION
  Report Type: Spontaneous
  Country: US (occurrence: US)
  Receive Date: 20250624
  Receipt Date: 20250624
  Transmission Date: 20250717
  Serious: No
  Sender: KRAMER LABORATORIES
  Company Number: US-KRAMERLABS-2024-US-063305

PATIENT
  Sex: Female

DRUGS (1)
  1. NIZORAL [Suspect]
     Active Substance: KETOCONAZOLE
     Indication: Product used for unknown indication
     Route: 061
     Dates: start: 20240404, end: 20240418

REACTIONS (3)
  - Eye irritation [Recovered/Resolved]
  - Dry eye [Recovered/Resolved]
  - Eye pruritus [Recovered/Resolved]

NARRATIVE: CASE EVENT DATE: 20240404
